FAERS Safety Report 7172592-3 (Version None)
Quarter: 2010Q4

REPORT INFORMATION
  Report Type: 
  Country: None (occurrence: None)
  Receive Date: 20101217
  Receipt Date: 20100211
  Transmission Date: 20110411
  Serious: Yes (Other)
  Sender: FDA-Public Use
  Company Number: US-AMGEN-KDL392171

PATIENT

DRUGS (14)
  1. ENBREL [Suspect]
     Indication: PRODUCT USED FOR UNKNOWN INDICATION
     Dosage: 50 MG, QWK
     Route: 058
  2. EFFEXOR XR [Concomitant]
     Dosage: 37.5 MG, UNK
     Route: 048
  3. TRAMADOL HCL [Concomitant]
     Dosage: 50 MG, UNK
     Route: 048
  4. BUSPIRONE [Concomitant]
     Dosage: 10 MG, UNK
     Route: 048
  5. LISINOPRIL AND HYDROCHLOROTHIAZIDE [Concomitant]
     Dosage: UNK UNK, UNK
  6. HYDROCHLOROTHIAZIDE [Concomitant]
     Dosage: 200 MG, UNK
     Route: 048
  7. FOLIC ACID [Concomitant]
     Dosage: 1 MG, UNK
     Route: 048
  8. TOPROL-XL [Concomitant]
     Dosage: 25 MG, UNK
     Route: 048
  9. ESOMEPRAZOLE MAGNESIUM [Concomitant]
     Dosage: 40 MG, UNK
  10. LEVOTHYROXINE SODIUM [Concomitant]
     Dosage: 100 A?G, UNK
     Route: 048
  11. PREDNISONE [Concomitant]
     Dosage: 5 MG, UNK
  12. CALCITONIN [Concomitant]
     Dosage: UNK UNK, UNK
     Route: 048
  13. METHOTREXATE [Concomitant]
     Dosage: 25 MG, UNK
  14. CALCIUM CITRATE [Concomitant]
     Dosage: UNK UNK, UNK
     Route: 048

REACTIONS (2)
  - CARDIAC FAILURE CONGESTIVE [None]
  - NAUSEA [None]
